FAERS Safety Report 4730874-6 (Version None)
Quarter: 2005Q3

REPORT INFORMATION
  Report Type: 
  Country: None (occurrence: None)
  Receive Date: 20050719
  Receipt Date: 20050203
  Transmission Date: 20060218
  Serious: Yes (Other)
  Sender: FDA-Public Use
  Company Number: 2005BI002664

PATIENT
  Age: 53 Year
  Sex: Male
  Weight: 99.7913 kg

DRUGS (12)
  1. AVONEX [Suspect]
     Indication: MULTIPLE SCLEROSIS
     Dosage: 30 UG;IM
     Route: 030
     Dates: start: 19980101
  2. AVONEX [Suspect]
     Indication: MULTIPLE SCLEROSIS
     Dosage: 30 UG;IM
     Route: 030
     Dates: start: 20040101
  3. NATALIZUMAB [Suspect]
     Indication: MULTIPLE SCLEROSIS
     Dosage: 300 MG;QM;IV
     Route: 042
     Dates: start: 20050103, end: 20050203
  4. VENLAFAXINE [Concomitant]
  5. SIMVASTATIN [Concomitant]
  6. LISINOPRIL [Concomitant]
  7. FELODIPINE [Concomitant]
  8. BACLOFEN [Concomitant]
  9. ATENOLOL [Concomitant]
  10. ASPIRIN [Concomitant]
  11. VICODIN [Concomitant]
  12. GABAPENTIN [Concomitant]

REACTIONS (1)
  - ANAPHYLACTIC REACTION [None]
